FAERS Safety Report 18155142 (Version 9)
Quarter: 2020Q4

REPORT INFORMATION
  Report Type: Spontaneous
  Country: US (occurrence: US)
  Receive Date: 20200817
  Receipt Date: 20201119
  Transmission Date: 20210113
  Serious: Yes (Hospitalization)
  Sender: FDA-Public Use
  Company Number: US-GLAXOSMITHKLINE-US2020AMR155722

PATIENT
  Sex: Female

DRUGS (6)
  1. ZEJULA [Suspect]
     Active Substance: NIRAPARIB
     Indication: OVARIAN CANCER
     Dosage: 300 MG, QD
     Route: 048
     Dates: start: 20200730
  2. ZEJULA [Suspect]
     Active Substance: NIRAPARIB
     Dosage: 200 MG, QD
     Route: 065
  3. ZEJULA [Suspect]
     Active Substance: NIRAPARIB
     Dosage: 200 MG, QD
     Route: 065
  4. ZEJULA [Suspect]
     Active Substance: NIRAPARIB
     Dosage: 200 MG, QD
     Route: 065
     Dates: start: 202007
  5. ZEJULA [Suspect]
     Active Substance: NIRAPARIB
     Dosage: 200 MG, QD (10PM WITH FOOD)
     Route: 065
     Dates: start: 20201025
  6. ZEJULA [Suspect]
     Active Substance: NIRAPARIB
     Dosage: 200 MG, QD
     Route: 065
     Dates: start: 20200827

REACTIONS (14)
  - Renal disorder [Unknown]
  - Central nervous system lesion [Unknown]
  - Hyperhidrosis [Not Recovered/Not Resolved]
  - Heart rate increased [Unknown]
  - Poor quality sleep [Unknown]
  - Decreased appetite [Unknown]
  - Feeling abnormal [Unknown]
  - Taste disorder [Unknown]
  - Dyspnoea [Not Recovered/Not Resolved]
  - Carbohydrate antigen 125 increased [Not Recovered/Not Resolved]
  - Weight decreased [Unknown]
  - Gait disturbance [Unknown]
  - Palpitations [Not Recovered/Not Resolved]
  - Drug ineffective [Unknown]
